FAERS Safety Report 4836025-1 (Version None)
Quarter: 2005Q4

REPORT INFORMATION
  Report Type: 
  Country: None (occurrence: None)
  Receive Date: 20051123
  Receipt Date: 20051004
  Transmission Date: 20060501
  Serious: Yes (Hospitalization)
  Sender: FDA-Public Use
  Company Number: US-MERCK-0510USA03111

PATIENT
  Age: 69 Year
  Sex: Male
  Weight: 91 kg

DRUGS (6)
  1. VIOXX [Suspect]
     Indication: ARTHRITIS
     Route: 048
     Dates: start: 20030606, end: 20040904
  2. ELAVIL [Concomitant]
     Route: 065
  3. ZANTAC [Concomitant]
     Route: 065
  4. NAPROXEN [Concomitant]
     Route: 065
  5. NEXIUM [Concomitant]
     Route: 065
  6. ASPIRIN [Concomitant]
     Route: 065

REACTIONS (6)
  - ANAEMIA [None]
  - CEREBELLAR INFARCTION [None]
  - DEEP VEIN THROMBOSIS [None]
  - FALL [None]
  - HYPERGLYCAEMIA [None]
  - MYELODYSPLASTIC SYNDROME [None]
